FAERS Safety Report 14839726 (Version 1)
Quarter: 2018Q2

REPORT INFORMATION
  Report Type: Spontaneous
  Country: FR (occurrence: FR)
  Receive Date: 20180503
  Receipt Date: 20180503
  Transmission Date: 20180711
  Serious: Yes (Other)
  Sender: FDA-Public Use
  Company Number: FR-MERCK KGAA-2047045

PATIENT
  Age: 46 Year
  Sex: Female

DRUGS (1)
  1. NOVOTHYROX [Suspect]
     Active Substance: LEVOTHYROXINE SODIUM
     Indication: AUTOIMMUNE THYROIDITIS
     Dates: start: 20170414, end: 20171125

REACTIONS (22)
  - Weight increased [None]
  - Inferiority complex [Recovered/Resolved]
  - Suicidal ideation [Recovered/Resolved]
  - Somnolence [Recovered/Resolved]
  - Social avoidant behaviour [None]
  - Burning sensation [Recovered/Resolved]
  - Vertigo [None]
  - Depression [Recovered/Resolved]
  - Disturbance in attention [Recovered/Resolved]
  - Back pain [None]
  - Headache [Recovered/Resolved]
  - Asthenia [None]
  - Fatigue [None]
  - Visual impairment [None]
  - Apathy [Recovered/Resolved]
  - Memory impairment [Recovered/Resolved]
  - Loss of employment [None]
  - Fatigue [None]
  - Loss of personal independence in daily activities [None]
  - Loss of libido [None]
  - Impaired driving ability [None]
  - Anxiety [Recovered/Resolved]

NARRATIVE: CASE EVENT DATE: 2017
